FAERS Safety Report 4905735-X (Version None)
Quarter: 2006Q1

REPORT INFORMATION
  Report Type: 
  Country: None (occurrence: None)
  Receive Date: 20060208
  Receipt Date: 20050505
  Transmission Date: 20060701
  Serious: Yes (Death, Hospitalization)
  Sender: FDA-Public Use
  Company Number: US-MERCK-0505USA00769

PATIENT
  Age: 60 Year
  Sex: Male
  Weight: 90 kg

DRUGS (3)
  1. VIOXX [Suspect]
     Indication: ARTHRITIS
     Route: 048
     Dates: start: 20030201, end: 20030427
  2. VIOXX [Suspect]
     Route: 048
     Dates: start: 20030201, end: 20030427
  3. ASPIRIN [Concomitant]
     Route: 065

REACTIONS (2)
  - LIMB CRUSHING INJURY [None]
  - MYOCARDIAL INFARCTION [None]
